FAERS Safety Report 5637799-2 (Version None)
Quarter: 2008Q1

REPORT INFORMATION
  Report Type: 
  Country: None (occurrence: None)
  Receive Date: 20080221
  Receipt Date: 20080213
  Transmission Date: 20080703
  Serious: Yes (Other)
  Sender: FDA-Public Use
  Company Number: 2008003809

PATIENT
  Age: 31 Year
  Sex: Female
  Weight: 72.5755 kg

DRUGS (6)
  1. SUDAFED PE SINUS HEADACHE CAPLET (ACETAMINOPHEN, PHENYLEPHRINE HYDROCH [Suspect]
     Indication: HYPERSENSITIVITY
     Dosage: 1 OR 2 DAILY, ORAL
     Route: 048
     Dates: end: 20080210
  2. ZYRTEC-D 12 HOUR [Concomitant]
  3. NEXIUM [Concomitant]
  4. NASONEX [Concomitant]
  5. YASMIN [Concomitant]
  6. DAYQUIL (DEXTROMETHORPHAN HYDROBROMIDE, GUAIFENESIN, PARACETAMOL, PSEU [Concomitant]

REACTIONS (1)
  - URTICARIA [None]
